FAERS Safety Report 7821439 (Version 3)
Quarter: 2013Q3

REPORT INFORMATION
  Report Type: Spontaneous
  Country: US (occurrence: US)
  Receive Date: 20110222
  Receipt Date: 20130911
  Transmission Date: 20140515
  Serious: Yes (Other)
  Sender: FDA-Public Use
  Company Number: US-ROCHE-734489

PATIENT
  Sex: Female
  Weight: 68 kg

DRUGS (4)
  1. ACCUTANE [Suspect]
     Indication: ACNE
     Route: 065
     Dates: start: 199901, end: 200001
  2. ACCUTANE [Suspect]
     Route: 065
     Dates: start: 200701, end: 200705
  3. ACCUTANE [Suspect]
     Route: 065
  4. ACCUTANE [Suspect]
     Route: 065
     Dates: start: 20090101, end: 20090601

REACTIONS (10)
  - Crohn^s disease [Unknown]
  - Rectal haemorrhage [Unknown]
  - Abdominal pain [Unknown]
  - Nausea [Unknown]
  - Depression [Unknown]
  - Inflammatory bowel disease [Unknown]
  - Anal abscess [Unknown]
  - Suicidal ideation [Unknown]
  - Mental disorder [Unknown]
  - Arthritis [Unknown]
